FAERS Safety Report 5033004-9 (Version None)
Quarter: 2006Q2

REPORT INFORMATION
  Report Type: 
  Country: None (occurrence: None)
  Receive Date: 20060515
  Receipt Date: 20060309
  Transmission Date: 20061013
  Serious: No
  Sender: FDA-Public Use
  Company Number: S06-USA-01085-01

PATIENT
  Age: 84 Year
  Sex: Female

DRUGS (3)
  1. NAMENDA [Suspect]
     Indication: DEMENTIA
     Dates: start: 20040101, end: 20040101
  2. ARICEPT [Concomitant]
  3. DESIPRAMINE HCL [Concomitant]

REACTIONS (3)
  - ABNORMAL BEHAVIOUR [None]
  - HALLUCINATION [None]
  - HYPERVIGILANCE [None]
